FAERS Safety Report 8881359 (Version 1)
Quarter: 2012Q4

REPORT INFORMATION
  Report Type: Spontaneous
  Country: US (occurrence: None)
  Receive Date: 20121102
  Receipt Date: 20121102
  Transmission Date: 20130627
  Serious: No
  Sender: FDA-Public Use
  Company Number: None

PATIENT

DRUGS (1)
  1. KETOROLAC [Suspect]

REACTIONS (13)
  - Injection site bruising [None]
  - Injection site swelling [None]
  - Hypersensitivity [None]
  - Wrong technique in drug usage process [None]
  - Pyrexia [None]
  - Hyperhidrosis [None]
  - Nausea [None]
  - Vomiting [None]
  - Dizziness [None]
  - Somnolence [None]
  - Pain [None]
  - Decreased appetite [None]
  - Insomnia [None]
